FAERS Safety Report 9303943 (Version 2)
Quarter: 2013Q2

REPORT INFORMATION
  Report Type: Spontaneous
  Country: AU (occurrence: AU)
  Receive Date: 20130522
  Receipt Date: 20130523
  Transmission Date: 20140414
  Serious: Yes (Other)
  Sender: FDA-Public Use
  Company Number: AU-ROCHE-1226279

PATIENT
  Age: 73 Year
  Sex: Female

DRUGS (9)
  1. PEG-INTERFERON ALFA 2A [Suspect]
     Indication: HEPATITIS C
     Route: 065
     Dates: start: 20130114
  2. RIBAVIRIN [Suspect]
     Indication: CHRONIC HEPATITIS C
     Route: 065
     Dates: start: 20130114
  3. RIBAVIRIN [Suspect]
     Route: 065
     Dates: start: 20130204
  4. RIBAVIRIN [Suspect]
     Route: 065
     Dates: start: 20130211, end: 20130218
  5. TELAPREVIR [Suspect]
     Indication: CHRONIC HEPATITIS C
     Route: 065
     Dates: start: 20130114
  6. WARFARIN [Concomitant]
  7. COVERSYL [Concomitant]
  8. OSTELIN [Concomitant]
     Indication: VITAMIN SUPPLEMENTATION
  9. CALTRATE [Concomitant]
     Indication: VITAMIN SUPPLEMENTATION

REACTIONS (3)
  - Lethargy [Unknown]
  - Anaemia [Not Recovered/Not Resolved]
  - Exercise tolerance decreased [Unknown]
